FAERS Safety Report 15325118 (Version 1)
Quarter: 2018Q3

REPORT INFORMATION
  Report Type: Spontaneous
  Country: US (occurrence: US)
  Receive Date: 20180822
  Receipt Date: 20180822
  Transmission Date: 20181010
  Serious: Yes (Death)
  Sender: FDA-Public Use
  Company Number: None

PATIENT
  Sex: Female

DRUGS (9)
  1. ATORVASTATIN 20MG [Concomitant]
     Active Substance: ATORVASTATIN
  2. METOPROLOL SUCCINATE 25MG [Concomitant]
     Active Substance: METOPROLOL SUCCINATE
  3. TEMOZOLOMIDE. [Suspect]
     Active Substance: TEMOZOLOMIDE
     Indication: BRAIN NEOPLASM MALIGNANT
     Dosage: ?          OTHER FREQUENCY:DAILY X 5, OFF 23;?
     Route: 048
     Dates: start: 20180207
  4. AMLODIPINE [Concomitant]
     Active Substance: AMLODIPINE BESYLATE
  5. ESOMEPRAZOLE 40MG [Concomitant]
     Active Substance: ESOMEPRAZOLE
  6. LEVETIRACETAM. [Concomitant]
     Active Substance: LEVETIRACETAM
  7. LORAZEPAM 1MG [Concomitant]
     Active Substance: LORAZEPAM
  8. DEXAMETHASONE 4MG [Concomitant]
     Active Substance: DEXAMETHASONE
  9. SERTRALINE [Concomitant]
     Active Substance: SERTRALINE HYDROCHLORIDE

REACTIONS (1)
  - Death [None]
